FAERS Safety Report 4365148-9 (Version None)
Quarter: 2004Q2

REPORT INFORMATION
  Report Type: 
  Country: None (occurrence: None)
  Receive Date: 20040525
  Receipt Date: 20040221
  Transmission Date: 20050107
  Serious: No
  Sender: FDA-Public Use
  Company Number: PHEH2004US02251

PATIENT
  Sex: Female

DRUGS (5)
  1. ZELNORM [Suspect]
     Dosage: 6 MG, BID
     Dates: start: 20031201
  2. VIVELLE-DOT [Suspect]
     Dosage: 1 MG, 2X WEEK, TRANSDERMAL
     Route: 062
  3. LIPITOR [Suspect]
     Dosage: 10 MG
  4. NORVASC [Suspect]
     Dosage: 2.5 MG
  5. PROTONIX [Suspect]
     Dosage: 40 MG

REACTIONS (5)
  - ASTHENIA [None]
  - CONSTIPATION [None]
  - FEELING ABNORMAL [None]
  - SLUGGISHNESS [None]
  - WEIGHT INCREASED [None]
